FAERS Safety Report 7290992-8 (Version None)
Quarter: 2011Q1

REPORT INFORMATION
  Report Type: 
  Country: None (occurrence: None)
  Receive Date: 20110214
  Receipt Date: 20110204
  Transmission Date: 20110831
  Serious: Yes (Other)
  Sender: FDA-Public Use
  Company Number: JP-BRISTOL-MYERS SQUIBB COMPANY-15536618

PATIENT
  Age: 58 Year
  Sex: Female

DRUGS (1)
  1. TAXOL [Suspect]
     Dosage: THERAPY STARTED:TWO AND HALF YEARS AGO
     Route: 041

REACTIONS (1)
  - SCLERODERMA [None]
